FAERS Safety Report 21622090 (Version 22)
Quarter: 2024Q4

REPORT INFORMATION
  Report Type: Spontaneous
  Country: US (occurrence: US)
  Receive Date: 20221121
  Receipt Date: 20241202
  Transmission Date: 20250115
  Serious: No
  Sender: PFIZER
  Company Number: US-PFIZER INC-PV202200037042

PATIENT
  Age: 65 Year
  Sex: Female
  Weight: 70.31 kg

DRUGS (5)
  1. PREMARIN [Suspect]
     Active Substance: ESTROGENS, CONJUGATED
     Indication: Urinary tract infection
     Dosage: APPLY VAGINALLY EVERY OTHER DAY (3 TIMES A WEEK)
     Route: 067
  2. PREMARIN [Suspect]
     Active Substance: ESTROGENS, CONJUGATED
     Indication: Vulvovaginal dryness
     Dosage: 1 G, DAILY
     Route: 067
  3. PREMARIN [Suspect]
     Active Substance: ESTROGENS, CONJUGATED
     Dosage: 0.5 G (NIGHTLY 2-3XS A WEEK 30 DAYS)
  4. PREMARIN [Suspect]
     Active Substance: ESTROGENS, CONJUGATED
     Dosage: VAGINAL CREAM, INSERT VAGINALLY, INSERT FROM THE TUBE ABOUT A FOURTH OF TUBE 3 TIMES WEEK
     Route: 067
     Dates: start: 2022
  5. PREMARIN [Suspect]
     Active Substance: ESTROGENS, CONJUGATED
     Dosage: 0.625MG/G

REACTIONS (5)
  - Off label use [Unknown]
  - Drug effective for unapproved indication [Unknown]
  - Wrong strength [Unknown]
  - Hot flush [Unknown]
  - Emotional disorder [Unknown]
